FAERS Safety Report 18545539 (Version 1)
Quarter: 2020Q4

REPORT INFORMATION
  Report Type: Report from Study
  Country: US (occurrence: US)
  Receive Date: 20201125
  Receipt Date: 20201125
  Transmission Date: 20210114
  Serious: Yes (Hospitalization)
  Sender: FDA-Public Use
  Company Number: US-GILEAD-2020-0505184

PATIENT
  Age: 37 Year
  Sex: Female

DRUGS (1)
  1. AZTREONAM LYSINE [Suspect]
     Active Substance: AZTREONAM LYSINE
     Indication: BURKHOLDERIA MALLEI INFECTION
     Dosage: 75 MG, TID, 28 DAYS ON, 28 DAYS OFF
     Route: 065
     Dates: start: 20201001

REACTIONS (3)
  - Oxygen saturation decreased [Recovering/Resolving]
  - Off label use [Not Recovered/Not Resolved]
  - Lung disorder [Recovering/Resolving]

NARRATIVE: CASE EVENT DATE: 20201001
